FAERS Safety Report 16831016 (Version 1)
Quarter: 2019Q3

REPORT INFORMATION
  Report Type: Spontaneous
  Country: US (occurrence: US)
  Receive Date: 20190920
  Receipt Date: 20190920
  Transmission Date: 20191005
  Serious: No
  Sender: FDA-Public Use
  Company Number: US-BTG-201900029

PATIENT
  Sex: Female

DRUGS (1)
  1. VARITHENA [Suspect]
     Active Substance: POLIDOCANOL
     Indication: PRODUCT USED FOR UNKNOWN INDICATION
     Dosage: PATIENT COMPLIED WITH COMPRESSION
     Route: 065
     Dates: start: 20181128

REACTIONS (4)
  - Pain [Unknown]
  - Thrombosis [Unknown]
  - Skin discolouration [Unknown]
  - Thrombophlebitis superficial [Unknown]
